FAERS Safety Report 21622146 (Version 2)
Quarter: 2022Q4

REPORT INFORMATION
  Report Type: Report from Study
  Country: GB (occurrence: GB)
  Receive Date: 20221121
  Receipt Date: 20221124
  Transmission Date: 20230113
  Serious: Yes (Congenital Anomaly, Other)
  Sender: FDA-Public Use
  Company Number: GB-009507513-2210GBR009139

PATIENT
  Age: 0 Year
  Sex: Female
  Weight: 2.48 kg

DRUGS (7)
  1. ISENTRESS [Suspect]
     Active Substance: RALTEGRAVIR POTASSIUM
     Dosage: 800 MILLIGRAM, QD
     Route: 064
     Dates: start: 20210719, end: 20211228
  2. STRIBILD [Suspect]
     Active Substance: COBICISTAT\ELVITEGRAVIR\EMTRICITABINE\TENOFOVIR DISOPROXIL FUMARATE
     Indication: HIV infection
     Dosage: 1 TAB/CAPS, QD
     Route: 064
     Dates: end: 20210718
  3. EMTRICITABINE\TENOFOVIR DISOPROXIL FUMARATE [Suspect]
     Active Substance: EMTRICITABINE\TENOFOVIR DISOPROXIL FUMARATE
     Indication: HIV infection
     Dosage: 1 DOSAGE FORM, QD
     Route: 064
     Dates: start: 20110719
  4. REYATAZ [Suspect]
     Active Substance: ATAZANAVIR SULFATE
     Indication: HIV infection
     Dosage: 300 MILLIGRAM, QD
     Route: 064
     Dates: start: 20211229
  5. RITONAVIR [Suspect]
     Active Substance: RITONAVIR
     Indication: HIV infection
     Dosage: 100 MILLIGRAM, QD
     Route: 064
     Dates: start: 20211229
  6. TIVICAY [Suspect]
     Active Substance: DOLUTEGRAVIR SODIUM
     Indication: HIV infection
     Dosage: 50 MILLIGRAM, QD
     Route: 064
     Dates: start: 20220125
  7. ATAZANAVIR [Suspect]
     Active Substance: ATAZANAVIR
     Indication: HIV infection
     Dosage: 300 MILLIGRAM, QD
     Route: 064
     Dates: start: 20211229

REACTIONS (5)
  - Renal dysplasia [Not Recovered/Not Resolved]
  - Single functional kidney [Not Recovered/Not Resolved]
  - Renal aplasia [Unknown]
  - Foetal exposure during delivery [Unknown]
  - Foetal exposure during pregnancy [Recovered/Resolved]

NARRATIVE: CASE EVENT DATE: 20220221
